FAERS Safety Report 6901025-4 (Version None)
Quarter: 2010Q3

REPORT INFORMATION
  Report Type: 
  Country: None (occurrence: None)
  Receive Date: 20100803
  Receipt Date: 20100728
  Transmission Date: 20110219
  Serious: Yes (Hospitalization, Other)
  Sender: FDA-Public Use
  Company Number: US-MYLANLABS-2010S1013653

PATIENT
  Age: 53 Year
  Sex: Male
  Weight: 97.52 kg

DRUGS (8)
  1. ALPRAZOLAM [Suspect]
     Indication: PANIC ATTACK
     Dates: start: 20100501
  2. LAMICTAL [Suspect]
     Indication: PANIC ATTACK
     Dates: start: 20100201, end: 20100601
  3. CLONAZEPAM [Concomitant]
     Indication: PANIC ATTACK
     Dates: start: 20100201
  4. SEROQUEL [Concomitant]
     Indication: PANIC ATTACK
     Dates: start: 20100201
  5. CARBAMAZEPINE [Concomitant]
     Indication: PANIC ATTACK
     Dates: start: 20100201
  6. CARDIAC THERAPY [Concomitant]
  7. ANTIHYPERTENSIVES [Concomitant]
     Indication: BLOOD PRESSURE INCREASED
  8. LYRICA [Concomitant]
     Indication: RHEUMATOID ARTHRITIS

REACTIONS (6)
  - ABASIA [None]
  - ARTHRALGIA [None]
  - MUSCLE SPASMS [None]
  - MYALGIA [None]
  - PANIC ATTACK [None]
  - RASH [None]
